FAERS Safety Report 5886886-2 (Version None)
Quarter: 2008Q3

REPORT INFORMATION
  Report Type: 
  Country: None (occurrence: None)
  Receive Date: 20080915
  Receipt Date: 20080901
  Transmission Date: 20090109
  Serious: No
  Sender: FDA-Public Use
  Company Number: 000253

PATIENT
  Age: 93 Year
  Sex: Male
  Weight: 46 kg

DRUGS (11)
  1. PLETAL [Suspect]
     Indication: ARTERIOSCLEROSIS OBLITERANS
     Dosage: 100 MG, BID ORAL
     Route: 048
     Dates: start: 20080112, end: 20080228
  2. CALCIUM ANTAGONIST (CALCIUM ANTAGONIST) [Concomitant]
  3. ASPIRIN [Concomitant]
  4. OMEPRAZOLE [Concomitant]
  5. KETOBUN (ALLOPURINOL) [Concomitant]
  6. CIGULANCOAT (NICORANDIL) [Concomitant]
  7. SALUMOSIN (NICERGOLINE) [Concomitant]
  8. METAHISLON (BETAHISTINE MESILATE) [Concomitant]
  9. CLARITHROMYCIN [Concomitant]
  10. SG (PYRAZOLONE ANTI-PYRETICS, ANALGESICS, ANTI-INFLAMMATORIES C) [Concomitant]
  11. FRENADOL S (ISOSORBIDE DINITRATE) [Concomitant]

REACTIONS (1)
  - CARDIAC FAILURE [None]
